FAERS Safety Report 8894158 (Version 2)
Quarter: 2012Q4

REPORT INFORMATION
  Report Type: 
  Country: JP (occurrence: JP)
  Receive Date: 20121108
  Receipt Date: 20121204
  Transmission Date: 20130627
  Serious: Yes (Disabling)
  Sender: FDA-Public Use
  Company Number: JP-009507513-1211JPN001381

PATIENT
  Age: 60 Year
  Sex: Female

DRUGS (4)
  1. SINGULAIR TABLETS 10MG [Suspect]
     Indication: ASTHMA
     Dosage: 1 DF, qd
     Route: 048
     Dates: start: 201001, end: 201210
  2. ALLELOCK OD [Suspect]
     Indication: RHINITIS ALLERGIC
     Dosage: 1 DF, qd
     Route: 048
     Dates: start: 201003
  3. SYMBICORT [Suspect]
     Indication: ASTHMA
     Dosage: 2 DF, bid
     Route: 055
     Dates: start: 201210, end: 201211
  4. CORTICOSTEROIDS (UNSPECIFIED) [Suspect]
     Indication: ASTHMA
     Dosage: daily dose unknown
     Route: 041

REACTIONS (1)
  - Muscular weakness [Recovered/Resolved]
